FAERS Safety Report 7098650-X (Version None)
Quarter: 2010Q4

REPORT INFORMATION
  Report Type: 
  Country: None (occurrence: None)
  Receive Date: 20101104
  Receipt Date: 20101019
  Transmission Date: 20110411
  Serious: Yes (Death, Other)
  Sender: FDA-Public Use
  Company Number: FKO201000485

PATIENT
  Age: 53 Year
  Sex: Male

DRUGS (1)
  1. MITOXANTRONE (MANUFACTURER UNKNOWN) (MITOXANTRONE) (MITOXANTRONE) [Suspect]
     Indication: MULTIPLE SCLEROSIS
     Dates: start: 20040301, end: 20040801

REACTIONS (5)
  - ACUTE MYELOID LEUKAEMIA [None]
  - BONE MARROW TRANSPLANT [None]
  - HAEMATOMA [None]
  - PANCYTOPENIA [None]
  - PNEUMONIA [None]
